FAERS Safety Report 7676570-7 (Version None)
Quarter: 2011Q3

REPORT INFORMATION
  Report Type: 
  Country: None (occurrence: None)
  Receive Date: 20110809
  Receipt Date: 20110809
  Transmission Date: 20111222
  Serious: Yes (Hospitalization)
  Sender: FDA-Public Use
  Company Number: None

PATIENT
  Age: 67 Year
  Sex: Male
  Weight: 113 kg

DRUGS (2)
  1. AMLODIPINE [Suspect]
     Indication: HYPERTENSION
     Dosage: 2.5MG AM PO
     Route: 048
     Dates: start: 20090730, end: 20110802
  2. LISINOPRIL AND HYDROCHLOROTHIAZIDE [Suspect]
     Indication: HYPERTENSION
     Dosage: 2 TAB EVERY DAY PO
     Route: 048

REACTIONS (1)
  - HYPOTENSION [None]
